FAERS Safety Report 14913489 (Version 3)
Quarter: 2018Q2

REPORT INFORMATION
  Report Type: Spontaneous
  Country: DK (occurrence: DK)
  Receive Date: 20180518
  Receipt Date: 20180530
  Transmission Date: 20180711
  Serious: Yes (Death, Life-Threatening, Hospitalization, Other)
  Sender: FDA-Public Use
  Company Number: DK-PFIZER INC-2013139900

PATIENT
  Age: 91 Year
  Sex: Female

DRUGS (1)
  1. METHOTREXATE. [Suspect]
     Active Substance: METHOTREXATE
     Dosage: 10 MG, 1X/DAY

REACTIONS (7)
  - Thrombocytopenia [Unknown]
  - Neutropenia [Unknown]
  - Mucosal inflammation [Unknown]
  - Inappropriate schedule of drug administration [Fatal]
  - Pancytopenia [Unknown]
  - Toxicity to various agents [Unknown]
  - Septic shock [Fatal]
